FAERS Safety Report 9252779 (Version 2)
Quarter: 2013Q3

REPORT INFORMATION
  Report Type: Spontaneous
  Country: US (occurrence: US)
  Receive Date: 20130424
  Receipt Date: 20130828
  Transmission Date: 20140515
  Serious: Yes (Hospitalization, Other)
  Sender: FDA-Public Use
  Company Number: US-ASTRAZENECA-2013SE26039

PATIENT
  Age: 53 Year
  Sex: Female
  Weight: 76.9 kg

DRUGS (7)
  1. NEXIUM [Suspect]
     Indication: EROSIVE OESOPHAGITIS
     Route: 048
     Dates: start: 20050323, end: 2006
  2. NEXIUM [Suspect]
     Indication: EROSIVE OESOPHAGITIS
     Route: 048
  3. NEXIUM [Suspect]
     Indication: EROSIVE OESOPHAGITIS
     Route: 048
  4. OMEPRAZOLE [Suspect]
     Indication: EROSIVE OESOPHAGITIS
     Route: 048
     Dates: start: 2006
  5. ASPIRIN [Concomitant]
     Indication: CARDIAC DISORDER
     Route: 048
     Dates: start: 1994
  6. VITAMIN D [Concomitant]
     Indication: VITAMIN D DEFICIENCY
     Dosage: 10,000UNITS
     Route: 048
     Dates: start: 2005
  7. COREG [Concomitant]
     Indication: CATHETERISATION CARDIAC
     Route: 048
     Dates: start: 2005

REACTIONS (10)
  - Ovarian cancer [Recovered/Resolved]
  - Adenoid cystic carcinoma [Unknown]
  - Hepatic neoplasm [Unknown]
  - Abdominal mass [Unknown]
  - Hypertension [Unknown]
  - Oesophagitis [Unknown]
  - Adverse event [Unknown]
  - Erosive oesophagitis [Unknown]
  - Off label use [Unknown]
  - Drug ineffective [Unknown]
